FAERS Safety Report 22177709 (Version 1)
Quarter: 2023Q2

REPORT INFORMATION
  Report Type: Spontaneous
  Country: DE (occurrence: DE)
  Receive Date: 20230405
  Receipt Date: 20230405
  Transmission Date: 20230721
  Serious: Yes (Death, Other)
  Sender: FDA-Public Use
  Company Number: DE-AMGEN-DEUSP2023056407

PATIENT

DRUGS (1)
  1. BEVACIZUMAB [Suspect]
     Active Substance: BEVACIZUMAB
     Indication: Hepatocellular carcinoma
     Route: 065

REACTIONS (10)
  - Death [Fatal]
  - Hepatocellular carcinoma [Unknown]
  - Haemorrhage [Unknown]
  - Adverse drug reaction [Unknown]
  - Immune-mediated adverse reaction [Unknown]
  - Off label use [Unknown]
  - Therapy partial responder [Unknown]
  - Proteinuria [Unknown]
  - Hypertension [Unknown]
  - Fatigue [Unknown]
